FAERS Safety Report 21613963 (Version 1)
Quarter: 2022Q4

REPORT INFORMATION
  Report Type: Spontaneous
  Country: DE (occurrence: None)
  Receive Date: 20221118
  Receipt Date: 20221118
  Transmission Date: 20230112
  Serious: Yes (Hospitalization)
  Sender: FDA-Public Use
  Company Number: 2022A373010

PATIENT
  Age: 84 Year
  Sex: Female

DRUGS (14)
  1. OMEPRAZOLE [Suspect]
     Active Substance: OMEPRAZOLE
     Indication: Prophylaxis
     Dosage: AS NECESSARY
     Route: 048
  2. CYMBALTA [Suspect]
     Active Substance: DULOXETINE HYDROCHLORIDE
     Dosage: 0-0-1
     Route: 048
  3. METHOCARBAMOL [Suspect]
     Active Substance: METHOCARBAMOL
     Indication: Fibromyalgia
     Dosage: 0-0-0-1
     Route: 048
  4. MAGNESIUM [Suspect]
     Active Substance: MAGNESIUM
     Dosage: 1-0-0
     Route: 048
     Dates: start: 202105
  5. CANDESARTAN CILEXETIL [Suspect]
     Active Substance: CANDESARTAN CILEXETIL
     Indication: Hypertension
     Dosage: 8/12,5 MG, 1-0-0
     Route: 048
  6. NALOXONE HYDROCHLORIDE\TILIDINE HYDROCHLORIDE [Suspect]
     Active Substance: NALOXONE HYDROCHLORIDE\TILIDINE HYDROCHLORIDE
     Indication: Fibromyalgia
     Dosage: 200 MG/16 MG, 1-0-1
     Route: 048
  7. CALCIUM [Suspect]
     Active Substance: CALCIUM
     Indication: Hypoparathyroidism
     Dosage: 1-0-0
     Route: 048
     Dates: start: 202104
  8. CALCITRIOL\CALCIUM CARBONATE [Suspect]
     Active Substance: CALCITRIOL\CALCIUM CARBONATE
     Indication: Hypoparathyroidism
     Dosage: 500 MG/400 IE 0-1-0
     Route: 048
     Dates: end: 20221031
  9. TORSEMIDE [Suspect]
     Active Substance: TORSEMIDE
     Indication: Oedema
     Dosage: 1-0-0
     Route: 048
  10. NATPARA (PARATHYROID HORMONE) [Suspect]
     Active Substance: PARATHYROID HORMONE
     Indication: Hypoparathyroidism
     Dosage: 25 ?G 1X TGL., S.C.
     Route: 048
     Dates: start: 20180420
  11. HYDROCHLOROTHIAZIDE\METOPROLOL TARTRATE [Suspect]
     Active Substance: HYDROCHLOROTHIAZIDE\METOPROLOL TARTRATE
     Indication: Hypertension
     Dosage: 12,5/100 MG, 0,5-0-0
     Route: 048
  12. CALCITRIOL [Suspect]
     Active Substance: CALCITRIOL
     Indication: Hypoparathyroidism
     Dosage: 0,25 ?G, 1-0-10.5UG/INHAL
  13. LEVOTHYROXINE SODIUM [Suspect]
     Active Substance: LEVOTHYROXINE SODIUM
     Indication: Thyroidectomy
     Dosage: 100 ?G AND 75 ?G ALTERNATELY, 1-0-0100UG/INHAL
  14. LEVOTHYROXINE SODIUM [Suspect]
     Active Substance: LEVOTHYROXINE SODIUM
     Indication: Thyroidectomy
     Dosage: 100 ?G AND 75 ?G ALTERNATELY, 1-0-075UG/INHAL

REACTIONS (2)
  - Dyspnoea [Not Recovered/Not Resolved]
  - Product use in unapproved indication [Not Recovered/Not Resolved]

NARRATIVE: CASE EVENT DATE: 20221029
